FAERS Safety Report 6699233-3 (Version None)
Quarter: 2010Q2

REPORT INFORMATION
  Report Type: 
  Country: None (occurrence: None)
  Receive Date: 20100427
  Receipt Date: 20100419
  Transmission Date: 20101027
  Serious: Yes (Other)
  Sender: FDA-Public Use
  Company Number: AU-PFIZER INC-2010049288

PATIENT
  Age: 67 Year
  Sex: Female

DRUGS (4)
  1. LIPITOR [Suspect]
     Dosage: 10 MG, UNK
     Dates: start: 20040207, end: 20040528
  2. LIPITOR [Suspect]
     Dosage: 20 MG, UNK
     Dates: start: 20040528, end: 20061211
  3. LIPITOR [Suspect]
     Dosage: 40 MG, UNK
     Dates: start: 20061211, end: 20090805
  4. LIPITOR [Suspect]
     Dosage: 80 MG, UNK
     Dates: start: 20090805

REACTIONS (4)
  - BLOOD TEST ABNORMAL [None]
  - MALAISE [None]
  - POLYMYALGIA RHEUMATICA [None]
  - RENAL PAIN [None]
